FAERS Safety Report 8823106 (Version 1)
Quarter: 2012Q4

REPORT INFORMATION
  Report Type: 
  Country: US (occurrence: US)
  Receive Date: 20121003
  Receipt Date: 20121003
  Transmission Date: 20130627
  Serious: Yes (Death)
  Sender: FDA-Public Use
  Company Number: US-ROCHE-1134983

PATIENT
  Sex: Female

DRUGS (8)
  1. RITUXAN [Suspect]
     Indication: NON-HODGKIN^S LYMPHOMA
     Route: 065
  2. CYCLOPHOSPHAMIDE [Concomitant]
     Route: 065
     Dates: start: 19970917
  3. MITOXANTRON [Concomitant]
     Route: 065
     Dates: start: 19970917
  4. VINCRISTINE [Concomitant]
     Route: 065
     Dates: start: 19970917
  5. PREDNISONE [Concomitant]
     Route: 065
     Dates: start: 19970917
  6. DEXAMETHASON [Concomitant]
  7. CISPLATIN [Concomitant]
  8. ARA-C [Concomitant]

REACTIONS (1)
  - Death [Fatal]
